FAERS Safety Report 6920614 (Version 9)
Quarter: 2015Q4

REPORT INFORMATION
  Report Type: Report from Study
  Country: JP (occurrence: JP)
  Receive Date: 20090226
  Receipt Date: 20151210
  Transmission Date: 20160305
  Serious: Yes (Hospitalization, Other)
  Sender: FDA-Public Use
  Company Number: JP-BAYER-200910508BYL

PATIENT
  Age: 55 Year
  Sex: Female
  Weight: 54 kg

DRUGS (16)
  1. MUCOSTA [Concomitant]
     Active Substance: REBAMIPIDE
     Dosage: 300 MG (DAILY DOSE), , ORAL
     Route: 048
     Dates: start: 20080424, end: 20080429
  2. PROSTANDIN [Concomitant]
     Dosage: 30 G (DAILY DOSE), , TOPICAL
     Route: 061
     Dates: start: 20080507, end: 20080515
  3. LOXONIN [Concomitant]
     Active Substance: LOXOPROFEN SODIUM
     Dosage: 60 MG (DAILY DOSE), , ORAL
     Route: 048
     Dates: start: 20080426, end: 20080430
  4. SELTOUCH [Concomitant]
     Active Substance: FELBINAC
     Route: 062
     Dates: start: 20080520, end: 20080714
  5. PROSTANDIN [Concomitant]
     Route: 061
     Dates: start: 20080613, end: 20080623
  6. GENTACIN [Concomitant]
     Active Substance: GENTAMICIN SULFATE
     Dosage: 10 G (DAILY DOSE), , TRANSDERMAL
     Route: 062
     Dates: start: 20080414, end: 20080421
  7. LASIX [Concomitant]
     Active Substance: FUROSEMIDE
     Indication: HYPERTENSION
     Dosage: 40 MG (DAILY DOSE), , ORAL
     Route: 048
     Dates: start: 20080520, end: 20080603
  8. LASIX [Concomitant]
     Active Substance: FUROSEMIDE
     Indication: HYPERTENSION
     Dosage: 20 MG (DAILY DOSE), , ORAL
     Route: 048
     Dates: start: 20081006, end: 20090401
  9. MOBIC [Concomitant]
     Active Substance: MELOXICAM
     Dosage: 10 MG (DAILY DOSE), , ORAL
     Route: 048
     Dates: start: 20080605, end: 20080714
  10. SODIUM BICARBONATE. [Concomitant]
     Active Substance: SODIUM BICARBONATE
     Dosage: 3 G (DAILY DOSE), , ORAL
     Route: 048
     Dates: start: 20080416, end: 20080714
  11. NEXAVAR [Suspect]
     Active Substance: SORAFENIB
     Indication: RENAL CELL CARCINOMA
     Route: 048
     Dates: start: 20080411
  12. FLOMOX [Concomitant]
     Active Substance: CEFCAPENE PIVOXIL HYDROCHLORIDE HYDRATE
     Dosage: 300 MG (DAILY DOSE), , ORAL
     Route: 048
     Dates: start: 20080424, end: 20080429
  13. CALONAL [Concomitant]
     Active Substance: ACETAMINOPHEN
     Dosage: 400 MG (DAILY DOSE), , ORAL
     Route: 048
     Dates: start: 20080530, end: 20080714
  14. NEXAVAR [Suspect]
     Active Substance: SORAFENIB
     Indication: RENAL CELL CARCINOMA
     Route: 048
     Dates: start: 20080402, end: 20080410
  15. KALIMATE [Concomitant]
     Active Substance: CALCIUM POLYSTYRENE SULFONATE
     Dosage: 15 G (DAILY DOSE), , ORAL
     Route: 048
     Dates: start: 20080520, end: 20090401
  16. JUSO [Concomitant]
     Active Substance: SODIUM BICARBONATE
     Dosage: 3 G (DAILY DOSE), , ORAL
     Route: 048
     Dates: start: 20080416

REACTIONS (19)
  - Acidosis [Not Recovered/Not Resolved]
  - Purulence [Not Recovered/Not Resolved]
  - Cancer pain [Not Recovered/Not Resolved]
  - Skin ulcer [Recovered/Resolved]
  - Renal impairment [Recovering/Resolving]
  - Nausea [Recovering/Resolving]
  - Pancreatic enzymes increased [Recovering/Resolving]
  - Post herpetic neuralgia [Not Recovered/Not Resolved]
  - Erythema [Recovering/Resolving]
  - Vomiting [Recovering/Resolving]
  - Hypertension [Recovering/Resolving]
  - Herpes zoster [Recovering/Resolving]
  - Constipation [Recovered/Resolved]
  - Hypertension [Recovering/Resolving]
  - Oropharyngeal pain [Recovered/Resolved]
  - Palmar-plantar erythrodysaesthesia syndrome [Recovering/Resolving]
  - Pyrexia [Recovered/Resolved]
  - Rash [Recovering/Resolving]
  - Peripheral swelling [Recovering/Resolving]

NARRATIVE: CASE EVENT DATE: 20080402
